FAERS Safety Report 11872930 (Version 1)
Quarter: 2015Q4

REPORT INFORMATION
  Report Type: Spontaneous
  Country: US (occurrence: US)
  Receive Date: 20151228
  Receipt Date: 20151228
  Transmission Date: 20160305
  Serious: No
  Sender: FDA-Public Use
  Company Number: US-PFIZER INC-2015461785

PATIENT
  Age: 49 Year
  Sex: Male
  Weight: 104 kg

DRUGS (1)
  1. VIAGRA [Suspect]
     Active Substance: SILDENAFIL CITRATE
     Indication: ERECTILE DYSFUNCTION
     Dosage: 250 MG, 2X/DAY
     Dates: start: 201510

REACTIONS (3)
  - Ejaculation disorder [Recovering/Resolving]
  - Overdose [Unknown]
  - Erection increased [Recovering/Resolving]

NARRATIVE: CASE EVENT DATE: 201510
